FAERS Safety Report 10222274 (Version 1)
Quarter: 2014Q2

REPORT INFORMATION
  Report Type: Spontaneous
  Country: CH (occurrence: CH)
  Receive Date: 20140606
  Receipt Date: 20140606
  Transmission Date: 20141212
  Serious: Yes (Other)
  Sender: FDA-Public Use
  Company Number: CH-GLAXOSMITHKLINE-B1000414A

PATIENT
  Age: 35 Year
  Sex: Female

DRUGS (2)
  1. LAMICTAL [Suspect]
     Indication: DEPRESSION
     Route: 064
     Dates: start: 2013, end: 20140204
  2. FLUCTINE [Suspect]
     Indication: DEPRESSION
     Dosage: 40MG PER DAY
     Route: 064
     Dates: start: 2013

REACTIONS (1)
  - Exposure during pregnancy [Unknown]
